FAERS Safety Report 4447791-1 (Version None)
Quarter: 2004Q3

REPORT INFORMATION
  Report Type: 
  Country: None (occurrence: None)
  Receive Date: 20040817
  Receipt Date: 20040225
  Transmission Date: 20050211
  Serious: Yes (Hospitalization)
  Sender: FDA-Public Use
  Company Number: MEDI-0001528

PATIENT
  Age: 3 Month
  Sex: Male
  Weight: 4.9896 kg

DRUGS (1)
  1. SYNAGIS [Suspect]
     Indication: ANTIVIRAL PROPHYLAXIS
     Dosage: 77 MG, 1 IN 30 MD, INTRAMUSCULAR
     Route: 030
     Dates: start: 20031229, end: 20040127

REACTIONS (1)
  - RESPIRATORY SYNCYTIAL VIRUS INFECTION [None]
